FAERS Safety Report 5665328-6 (Version None)
Quarter: 2008Q1

REPORT INFORMATION
  Report Type: 
  Country: None (occurrence: None)
  Receive Date: 20080314
  Receipt Date: 20080131
  Transmission Date: 20080703
  Serious: Yes (Hospitalization)
  Sender: FDA-Public Use
  Company Number: US-ABBOTT-07P-163-0424651-00

PATIENT
  Sex: Female
  Weight: 56.75 kg

DRUGS (9)
  1. HUMIRA [Suspect]
     Indication: SPONDYLITIS
     Route: 058
     Dates: start: 20060301
  2. HUMIRA [Suspect]
     Route: 058
     Dates: end: 20080110
  3. BIRTH CONTROL PILLS [Concomitant]
     Indication: CONTRACEPTION
     Route: 048
     Dates: start: 20060101
  4. METHOTREXATE [Concomitant]
     Indication: SPONDYLITIS
     Route: 048
     Dates: start: 20060101
  5. PROTONIC [Concomitant]
     Indication: SUPPLEMENTATION THERAPY
     Route: 048
  6. ESCITALOPRAM OXALATE [Concomitant]
     Indication: DEPRESSION
     Route: 048
  7. CYCLOBENZAPRINE HCL [Concomitant]
     Indication: SPONDYLITIS
     Route: 048
  8. FOLIC ACID [Concomitant]
     Indication: VITAMIN SUPPLEMENTATION
     Route: 048
  9. TRAMADOL HCL [Concomitant]
     Indication: PAIN MANAGEMENT
     Route: 048

REACTIONS (11)
  - BACK PAIN [None]
  - DRUG INEFFECTIVE [None]
  - HEADACHE [None]
  - HYPOAESTHESIA [None]
  - INFECTIOUS MONONUCLEOSIS [None]
  - JOINT SWELLING [None]
  - MENINGITIS VIRAL [None]
  - NAUSEA [None]
  - OEDEMA PERIPHERAL [None]
  - PARAESTHESIA [None]
  - PHARYNGITIS STREPTOCOCCAL [None]
